FAERS Safety Report 25659296 (Version 1)
Quarter: 2025Q3

REPORT INFORMATION
  Report Type: Spontaneous
  Country: US (occurrence: None)
  Receive Date: 20250807
  Receipt Date: 20250807
  Transmission Date: 20251021
  Serious: Yes (Hospitalization)
  Sender: FDA-CTU
  Company Number: None

PATIENT
  Age: 63 Year
  Sex: Female
  Weight: 147 kg

DRUGS (20)
  1. COSENTYX [Suspect]
     Active Substance: SECUKINUMAB
     Indication: Hidradenitis
     Route: 058
     Dates: start: 20250423
  2. NORVASC [Concomitant]
     Active Substance: AMLODIPINE BESYLATE
  3. CALCIUM\VITAMIN D [Concomitant]
     Active Substance: CALCIUM\VITAMIN D
  4. MAGNESIUM OXIDE [Concomitant]
     Active Substance: MAGNESIUM OXIDE
  5. TRESIBA [Concomitant]
     Active Substance: INSULIN DEGLUDEC
  6. ALBUTEROL HFA INH [Concomitant]
  7. ASPIRIN [Concomitant]
     Active Substance: ASPIRIN
  8. CLINDAMYCIN [Concomitant]
     Active Substance: CLINDAMYCIN
  9. DULOXETINE [Concomitant]
     Active Substance: DULOXETINE
  10. GABAPENTIN [Concomitant]
     Active Substance: GABAPENTIN
  11. HIBICLENS 4% TOPICAL SOLN [Concomitant]
  12. HUMALOG [Concomitant]
     Active Substance: INSULIN LISPRO
  13. LATANOPROST [Concomitant]
     Active Substance: LATANOPROST
  14. METFORMIN [Concomitant]
     Active Substance: METFORMIN HYDROCHLORIDE
  15. METOPROLOL TARTRATE [Concomitant]
     Active Substance: METOPROLOL TARTRATE
  16. OMEPRAZOLE [Concomitant]
     Active Substance: OMEPRAZOLE
  17. PRAMIPEXOLE [Concomitant]
     Active Substance: PRAMIPEXOLE
  18. SIMVASTATIN [Concomitant]
     Active Substance: SIMVASTATIN
  19. VALSARTAN [Concomitant]
     Active Substance: VALSARTAN
  20. VITAMIN D [Concomitant]
     Active Substance: VITAMIN D NOS

REACTIONS (2)
  - Intestinal obstruction [None]
  - Adverse drug reaction [None]

NARRATIVE: CASE EVENT DATE: 20250806
